FAERS Safety Report 26200614 (Version 1)
Quarter: 2025Q4

REPORT INFORMATION
  Report Type: Spontaneous
  Country: US (occurrence: US)
  Receive Date: 20251225
  Receipt Date: 20251225
  Transmission Date: 20260118
  Serious: Yes (Hospitalization, Other)
  Sender: BAXTER
  Company Number: US-BAXTER-2025BAX026323

PATIENT
  Age: 48 Year
  Sex: Female

DRUGS (2)
  1. NAFCILLIN [Suspect]
     Active Substance: NAFCILLIN SODIUM
     Indication: Antibiotic therapy
     Route: 042
  2. VANCOMYCIN [Suspect]
     Active Substance: VANCOMYCIN
     Indication: Hepatitis cholestatic
     Route: 065

REACTIONS (4)
  - Hepatitis cholestatic [Recovering/Resolving]
  - Jaundice [Recovering/Resolving]
  - Pruritus [Recovering/Resolving]
  - Blood bilirubin increased [Recovered/Resolved]
